FAERS Safety Report 8402529 (Version 9)
Quarter: 2012Q4

REPORT INFORMATION
  Report Type: 
  Country: US (occurrence: US)
  Receive Date: 20120213
  Receipt Date: 20121015
  Transmission Date: 20130627
  Serious: Yes (Other)
  Sender: FDA-Public Use
  Company Number: US-PFIZER INC-2012036924

PATIENT
  Age: 82 Year
  Sex: Female
  Weight: 69.39 kg

DRUGS (7)
  1. XANAX [Suspect]
     Dosage: UNK
  2. XANAX [Suspect]
     Dosage: 0.5 mg, UNK
  3. XANAX [Suspect]
     Dosage: 1 mg, 3x/day
  4. FOLIC ACID [Concomitant]
     Dosage: UNK
  5. TOPROL XL [Concomitant]
     Dosage: 50 mg, UNK
  6. K-DUR 10 [Concomitant]
     Dosage: 10 mEq, 1x/day
  7. INDAPAMIDE [Concomitant]
     Dosage: 2.5 mg, 1x/day

REACTIONS (14)
  - Myocardial infarction [Recovering/Resolving]
  - Chest pain [Unknown]
  - Palpitations [Unknown]
  - Hypertension [Unknown]
  - Anxiety [Unknown]
  - Abasia [Unknown]
  - Panic reaction [Unknown]
  - Malaise [Unknown]
  - Decreased appetite [Unknown]
  - Feeling abnormal [Unknown]
  - Crying [Unknown]
  - Mental disorder [Unknown]
  - Abnormal behaviour [Unknown]
  - Antisocial behaviour [Unknown]
